FAERS Safety Report 7725602-6 (Version None)
Quarter: 2011Q3

REPORT INFORMATION
  Report Type: 
  Country: None (occurrence: None)
  Receive Date: 20110902
  Receipt Date: 20110822
  Transmission Date: 20111222
  Serious: No
  Sender: FDA-Public Use
  Company Number: US-B.I. PHARMACEUTICALS,INC./RIDGEFIELD-2011-BP-20504BP

PATIENT
  Sex: Female

DRUGS (19)
  1. PRADAXA [Suspect]
  2. MAGNESIUM [Concomitant]
     Indication: ROUTINE HEALTH MAINTENANCE
     Dosage: 400 MG
     Route: 048
     Dates: start: 20090101
  3. COMBIVENT [Concomitant]
     Indication: CHRONIC OBSTRUCTIVE PULMONARY DISEASE
     Dosage: 1 PUF
     Route: 055
     Dates: start: 20090101
  4. VIT D3 [Concomitant]
     Indication: ROUTINE HEALTH MAINTENANCE
     Dosage: 2000 U
     Route: 048
     Dates: start: 20100101
  5. CALCIUM CARBONATE [Concomitant]
     Indication: ROUTINE HEALTH MAINTENANCE
     Dosage: 1200 MG
     Route: 048
     Dates: start: 20090101
  6. COENZYME Q10 [Concomitant]
     Indication: ROUTINE HEALTH MAINTENANCE
     Dosage: 50 MG
     Route: 048
     Dates: start: 20090101
  7. PRADAXA [Suspect]
     Indication: ATRIAL FIBRILLATION
     Dosage: 300 MG
     Route: 048
     Dates: start: 20110301, end: 20110701
  8. VICODIN [Concomitant]
     Indication: ARTHRALGIA
     Route: 048
     Dates: start: 20090101
  9. ADVAIR DISKUS 100/50 [Concomitant]
     Indication: CHRONIC OBSTRUCTIVE PULMONARY DISEASE
     Dosage: 1 PUF
     Route: 055
     Dates: start: 20090101
  10. CARDIZEM [Concomitant]
     Indication: ATRIAL FIBRILLATION
     Dosage: 360 MG
     Route: 048
     Dates: start: 20080101
  11. ASCORBIC ACID [Concomitant]
     Indication: ROUTINE HEALTH MAINTENANCE
     Dosage: 500 MG
     Route: 048
     Dates: start: 19610101
  12. CALCITRIOL [Concomitant]
     Indication: OSTEOPOROSIS
     Route: 048
     Dates: start: 20100601
  13. TYLENOL W/ CODEINE [Concomitant]
     Indication: ARTHRALGIA
     Route: 048
     Dates: start: 20090101
  14. DIGOXIN [Concomitant]
     Indication: ATRIAL FIBRILLATION
     Dosage: 0.125 MG
     Route: 048
     Dates: start: 20100101
  15. LASIX [Concomitant]
     Indication: OEDEMA PERIPHERAL
     Route: 048
     Dates: start: 20100101
  16. DITROPAN [Concomitant]
     Indication: BLADDER DISORDER
     Dosage: 10 MG
     Route: 048
     Dates: start: 20080101
  17. XANAX [Concomitant]
     Indication: INSOMNIA
     Route: 048
     Dates: start: 20100101
  18. ZOCOR [Concomitant]
     Indication: BLOOD CHOLESTEROL INCREASED
     Dosage: 10 MG
     Route: 048
     Dates: start: 20100101
  19. PRILOSEC [Concomitant]
     Indication: GASTROOESOPHAGEAL REFLUX DISEASE
     Dosage: 20 MG
     Route: 048
     Dates: start: 20080101

REACTIONS (1)
  - OEDEMA PERIPHERAL [None]
